FAERS Safety Report 17929430 (Version 1)
Quarter: 2020Q2

REPORT INFORMATION
  Report Type: Spontaneous
  Country: US (occurrence: US)
  Receive Date: 20200622
  Receipt Date: 20200622
  Transmission Date: 20200714
  Serious: Yes (Death)
  Sender: FDA-Public Use
  Company Number: None

PATIENT
  Age: 66 Year
  Sex: Female

DRUGS (9)
  1. METRONIDAZOL [Concomitant]
     Active Substance: METRONIDAZOLE
  2. AMITRIPTYLIN [Concomitant]
     Active Substance: AMITRIPTYLINE
  3. TRAMADOL. [Concomitant]
     Active Substance: TRAMADOL
  4. ALBUTEROL. [Concomitant]
     Active Substance: ALBUTEROL
  5. CIPRO [Concomitant]
     Active Substance: CIPROFLOXACIN HYDROCHLORIDE
  6. CLONAZEPAM. [Concomitant]
     Active Substance: CLONAZEPAM
  7. CYCLOSPORINE 25MG [Suspect]
     Active Substance: CYCLOSPORINE
     Indication: LIVER TRANSPLANT
     Dosage: OTHER DOSE:75 MG/50 MG;OTHER FREQUENCY:QAM/QPM;?
     Route: 048
     Dates: start: 20191011
  8. PREVALITE [Concomitant]
     Active Substance: CHOLESTYRAMINE
  9. CHOLESTYRAM [Concomitant]
     Active Substance: CHOLESTYRAMINE

REACTIONS (1)
  - Death [None]

NARRATIVE: CASE EVENT DATE: 20200617
